FAERS Safety Report 7027193-4 (Version None)
Quarter: 2010Q4

REPORT INFORMATION
  Report Type: 
  Country: None (occurrence: None)
  Receive Date: 20101001
  Receipt Date: 20101001
  Transmission Date: 20110411
  Serious: Yes (Other)
  Sender: FDA-Public Use
  Company Number: None

PATIENT
  Age: 42 Year
  Sex: Female
  Weight: 95.2554 kg

DRUGS (1)
  1. BENZONATATE [Suspect]
     Indication: COUGH
     Dosage: 200 MG 3 TIMES/DAY PRN PO
     Route: 047
     Dates: start: 20100405, end: 20100405

REACTIONS (1)
  - RASH PRURITIC [None]
